FAERS Safety Report 5883554-8 (Version None)
Quarter: 2008Q3

REPORT INFORMATION
  Report Type: 
  Country: None (occurrence: None)
  Receive Date: 20080915
  Receipt Date: 20080819
  Transmission Date: 20090109
  Serious: No
  Sender: FDA-Public Use
  Company Number: US-BAYER-200822949NA

PATIENT
  Age: 30 Year
  Sex: Female
  Weight: 70 kg

DRUGS (1)
  1. MIRENA [Suspect]
     Indication: CONTRACEPTION
     Route: 015
     Dates: start: 20080207

REACTIONS (9)
  - ABDOMINAL DISTENSION [None]
  - EAR PRURITUS [None]
  - FATIGUE [None]
  - GENITAL HAEMORRHAGE [None]
  - LACTATION PUERPERAL INCREASED [None]
  - MENORRHAGIA [None]
  - MENSTRUATION DELAYED [None]
  - NAUSEA [None]
  - SOMNOLENCE [None]
